FAERS Safety Report 14565911 (Version 3)
Quarter: 2018Q2

REPORT INFORMATION
  Report Type: Report from Study
  Country: DE (occurrence: DE)
  Receive Date: 20180223
  Receipt Date: 20180403
  Transmission Date: 20180711
  Serious: Yes (Hospitalization, Other)
  Sender: FDA-Public Use
  Company Number: DE-BRISTOL-MYERS SQUIBB COMPANY-BMS-2017-121141

PATIENT
  Sex: Male
  Weight: 93.4 kg

DRUGS (13)
  1. NIVOLUMAB [Suspect]
     Active Substance: NIVOLUMAB
     Indication: RENAL CELL CARCINOMA
     Dosage: UNK
     Route: 042
  2. BISOPROLOL-RATIOPHARM [Concomitant]
     Indication: ARRHYTHMIA
     Dosage: 5 MG, BID
     Route: 048
  3. CALCIUM [Concomitant]
     Active Substance: CALCIUM
     Indication: OSTEOSIS
     Dosage: 0.5 MG, QD
     Route: 065
     Dates: start: 201703
  4. IBU RATIOPHARM 200 AKUT SCHMERZTABLETTEN [Concomitant]
     Indication: SPINAL PAIN
     Dosage: 600 MG, TID
     Route: 048
     Dates: start: 20171109
  5. VOTRIENT [Suspect]
     Active Substance: PAZOPANIB HYDROCHLORIDE
     Indication: METASTATIC RENAL CELL CARCINOMA
     Dosage: 800 MG, QD
     Route: 048
     Dates: start: 20170207, end: 20170926
  6. XGEVA [Concomitant]
     Active Substance: DENOSUMAB
     Indication: SPINAL PAIN
     Dosage: 120 MG, QMO
     Route: 058
     Dates: start: 20170308
  7. LYRICA [Concomitant]
     Active Substance: PREGABALIN
     Indication: SPINAL PAIN
     Dosage: 75 MG, BID
     Route: 048
  8. CHOLECALCIFEROL [Concomitant]
     Active Substance: CHOLECALCIFEROL
     Indication: OSTEOSIS
     Dosage: 4000 IU, QD
     Route: 065
     Dates: start: 201703
  9. NIVOLUMAB [Suspect]
     Active Substance: NIVOLUMAB
     Indication: PRODUCT USED FOR UNKNOWN INDICATION
     Dosage: 3 MG/KG, UNK
     Route: 042
     Dates: start: 20171026, end: 20180131
  10. OXYGESIC [Concomitant]
     Active Substance: OXYCODONE
     Indication: SPINAL PAIN
     Dosage: 20 MG, BID
     Route: 048
     Dates: start: 20171109
  11. IBUPROFEN. [Concomitant]
     Active Substance: IBUPROFEN
     Indication: SPINAL PAIN
     Dosage: 600 MG, PRN
     Route: 048
  12. ASS-RATIOPHARM [Concomitant]
     Active Substance: ASPIRIN
     Indication: ARRHYTHMIA
     Dosage: 100 MG, QD
     Route: 048
  13. OXYGESIC [Concomitant]
     Active Substance: OXYCODONE
     Indication: PRODUCT USED FOR UNKNOWN INDICATION
     Dosage: 20 MG, BID
     Route: 048
     Dates: start: 2017, end: 20171109

REACTIONS (4)
  - Blood pressure fluctuation [Not Recovered/Not Resolved]
  - Haemothorax [Recovering/Resolving]
  - Pneumothorax [Recovered/Resolved]
  - Hypoventilation [Recovering/Resolving]

NARRATIVE: CASE EVENT DATE: 20171006
